FAERS Safety Report 9891389 (Version 2)
Quarter: 2014Q1

REPORT INFORMATION
  Report Type: Spontaneous
  Country: DE (occurrence: None)
  Receive Date: 20140207
  Receipt Date: 20140214
  Transmission Date: 20141002
  Serious: Yes (Other)
  Sender: FDA-Public Use
  Company Number: 1401-0204

PATIENT
  Age: 87 Year
  Sex: Female

DRUGS (2)
  1. EYELEA [Suspect]
     Indication: AGE-RELATED MACULAR DEGENERATION
     Route: 031
     Dates: start: 20131028, end: 20131028
  2. XARELTO [Suspect]
     Indication: CARDIOVASCULAR DISORDER

REACTIONS (2)
  - Retinal haemorrhage [None]
  - Blindness [None]
